FAERS Safety Report 19783327 (Version 1)
Quarter: 2021Q3

REPORT INFORMATION
  Report Type: Report from Study
  Country: CA (occurrence: CA)
  Receive Date: 20210903
  Receipt Date: 20210903
  Transmission Date: 20211014
  Serious: Yes (Other)
  Sender: FDA-Public Use
  Company Number: NVSC2021CA196308

PATIENT
  Age: 74 Year
  Sex: Male
  Weight: 90.9 kg

DRUGS (17)
  1. COVERSYL PLUS [Concomitant]
     Active Substance: INDAPAMIDE\PERINDOPRIL
     Indication: HYPERTENSION
     Dosage: 1 DF, QD
     Route: 065
     Dates: start: 1998
  2. TETRACYCLINE HCL [Concomitant]
     Active Substance: TETRACYCLINE HYDROCHLORIDE
     Indication: BRONCHITIS
     Dosage: 500 MG, BID
     Route: 065
     Dates: start: 20190815, end: 20190829
  3. BETADERM [Concomitant]
     Active Substance: BETAMETHASONE VALERATE
     Indication: PSORIASIS
     Dosage: 1 APP, QD
     Route: 061
     Dates: start: 201907
  4. ACITRETIN. [Suspect]
     Active Substance: ACITRETIN
     Dosage: 30 MG, QD
     Route: 065
     Dates: start: 20191104
  5. ATENOLOL. [Concomitant]
     Active Substance: ATENOLOL
     Indication: HYPERTENSION
     Dosage: 50 MG, QD
     Route: 065
     Dates: start: 1998, end: 20180705
  6. ELIQUIS [Concomitant]
     Active Substance: APIXABAN
     Indication: ATRIAL FIBRILLATION
     Dosage: 5 MG, QD
     Route: 065
     Dates: start: 201612
  7. DOVOBET [Concomitant]
     Active Substance: BETAMETHASONE\CALCIPOTRIENE
     Indication: PSORIASIS
     Dosage: 1 APP, QD
     Route: 061
     Dates: start: 201907
  8. TAMSULOSIN HCL [Concomitant]
     Active Substance: TAMSULOSIN HYDROCHLORIDE
     Indication: PROSTATITIS
     Dosage: 0.4 MG, QD
     Route: 065
     Dates: start: 20190815, end: 20190915
  9. SALBUTAMOL [Concomitant]
     Active Substance: ALBUTEROL
     Indication: BRONCHITIS
     Dosage: 100MCG, PRN (PUFFER)
     Route: 065
     Dates: start: 20190815, end: 201909
  10. ALLOPURINOL. [Concomitant]
     Active Substance: ALLOPURINOL
     Indication: CRYSTAL URINE
     Dosage: 200 MG, PRN
     Route: 065
     Dates: start: 1993
  11. FLUTICASONE. [Concomitant]
     Active Substance: FLUTICASONE
     Indication: BRONCHITIS
     Dosage: 125MCG, BID (PUFFER)
     Route: 065
     Dates: start: 20190815, end: 201909
  12. COSENTYX [Suspect]
     Active Substance: SECUKINUMAB
     Indication: PSORIASIS
     Dosage: UNK
     Route: 065
  13. ACITRETIN. [Suspect]
     Active Substance: ACITRETIN
     Indication: PSORIASIS
     Dosage: 25 MG, QD
     Route: 065
     Dates: start: 20180403, end: 20190504
  14. ACITRETIN. [Suspect]
     Active Substance: ACITRETIN
     Dosage: 30 MG, QD
     Route: 065
     Dates: start: 20200610
  15. METFORMIN FC [Concomitant]
     Indication: TYPE 2 DIABETES MELLITUS
     Dosage: 500 MG, BID
     Route: 065
  16. NITROFURANTOIN. [Concomitant]
     Active Substance: NITROFURANTOIN
     Indication: CYSTITIS
     Dosage: 100 MG, BID
     Route: 065
     Dates: start: 20191027, end: 20191103
  17. TIOTROPIUM [Concomitant]
     Active Substance: TIOTROPIUM
     Indication: BRONCHITIS
     Dosage: 2.5MCG, QD (PUFFER)
     Route: 065
     Dates: start: 20190815, end: 201909

REACTIONS (2)
  - Bladder cancer [Not Recovered/Not Resolved]
  - Prostate cancer [Not Recovered/Not Resolved]

NARRATIVE: CASE EVENT DATE: 202104
